FAERS Safety Report 18226617 (Version 1)
Quarter: 2020Q3

REPORT INFORMATION
  Report Type: Spontaneous
  Country: US (occurrence: US)
  Receive Date: 20200902
  Receipt Date: 20200902
  Transmission Date: 20201103
  Serious: Yes (Hospitalization)
  Sender: FDA-Public Use
  Company Number: None

PATIENT
  Sex: Female

DRUGS (17)
  1. BROM/PSE/DM [Concomitant]
  2. OMEPRAZOLE. [Concomitant]
     Active Substance: OMEPRAZOLE
  3. FLUCONAZOLE. [Concomitant]
     Active Substance: FLUCONAZOLE
  4. AMOXICILLIN. [Concomitant]
     Active Substance: AMOXICILLIN
  5. TRAMADOL. [Concomitant]
     Active Substance: TRAMADOL
  6. HUMIRA [Suspect]
     Active Substance: ADALIMUMAB
     Indication: COLITIS
     Route: 058
     Dates: start: 20190402
  7. ALPRAZOLAM. [Concomitant]
     Active Substance: ALPRAZOLAM
  8. AZITHROMYCIN ANHYDROUS. [Concomitant]
     Active Substance: AZITHROMYCIN ANHYDROUS
  9. APREPITANT. [Concomitant]
     Active Substance: APREPITANT
  10. CIPROFLOXACIN. [Concomitant]
     Active Substance: CIPROFLOXACIN
  11. PREDNISONE. [Concomitant]
     Active Substance: PREDNISONE
  12. APAP/CODEINE [Concomitant]
     Active Substance: ACETAMINOPHEN\CODEINE PHOSPHATE
  13. HYOSCYAMINE. [Concomitant]
     Active Substance: HYOSCYAMINE
  14. NAPROXEN. [Concomitant]
     Active Substance: NAPROXEN
  15. ONDANSETRON [Concomitant]
     Active Substance: ONDANSETRON
  16. CHANTIX [Concomitant]
     Active Substance: VARENICLINE TARTRATE
  17. METRONIDAZOL [Concomitant]
     Active Substance: METRONIDAZOLE

REACTIONS (1)
  - Abdominal infection [None]
